FAERS Safety Report 8352805-2 (Version None)
Quarter: 2012Q2

REPORT INFORMATION
  Report Type: 
  Country: None (occurrence: None)
  Receive Date: 20120511
  Receipt Date: 20120504
  Transmission Date: 20120825
  Serious: Yes (Life-Threatening, Hospitalization)
  Sender: FDA-Public Use
  Company Number: US-BAYER-2012-009280

PATIENT
  Age: 49 Year
  Sex: Female
  Weight: 50 kg

DRUGS (22)
  1. PEXEVA [Concomitant]
     Dosage: UNK
  2. ZYRTEC [Concomitant]
     Dosage: 5 MG,Q HS
     Route: 048
     Dates: start: 20090624
  3. YASMIN [Suspect]
     Indication: PREMENSTRUAL SYNDROME
  4. CIPROFLOXACIN [Concomitant]
     Dosage: 250 MG, UNK
     Dates: start: 20090519
  5. VITAMIN [Concomitant]
     Dosage: ? TABLET DAILY
     Route: 048
     Dates: start: 20090624
  6. YAZ [Suspect]
     Indication: CONTRACEPTION
     Dosage: UNK
     Dates: start: 20070201, end: 20090601
  7. DIGOXIN [Concomitant]
  8. XANAX [Concomitant]
     Dosage: 0.125 MG, PRN
     Route: 048
     Dates: start: 20090624
  9. TPN [Concomitant]
     Dosage: UNK
     Dates: start: 20090624
  10. YAZ [Suspect]
     Indication: MENOMETRORRHAGIA
  11. PEPCID [Concomitant]
     Dosage: UNK
     Dates: start: 20090318
  12. ANAPROX [Concomitant]
     Dosage: 250 MG,PRN
  13. VERAMYST [Concomitant]
     Dosage: PRN
     Dates: start: 20090624
  14. YASMIN [Suspect]
     Indication: CONTRACEPTION
     Dosage: UNK
     Dates: start: 20071018, end: 20090610
  15. IRON [Concomitant]
  16. ADVAIR DISKUS 100/50 [Concomitant]
     Dosage: PRN
     Dates: start: 20090624
  17. YAZ [Suspect]
     Indication: PREMENSTRUAL SYNDROME
  18. GAS-X [Concomitant]
     Dosage: UNK
     Dates: start: 20090318
  19. ASPIRIN [Concomitant]
     Dosage: 325 MG,Q HS
     Route: 048
     Dates: start: 20090624
  20. AMBIEN [Concomitant]
     Dosage: 5 MG,Q HS PRN
     Dates: start: 20090624
  21. XOPENEX [Concomitant]
     Dosage: PRN
     Route: 045
     Dates: start: 20090624
  22. ZOCOR [Concomitant]
     Dosage: UNK
     Dates: start: 20090601

REACTIONS (4)
  - ANHEDONIA [None]
  - ANXIETY [None]
  - DEEP VEIN THROMBOSIS [None]
  - PAIN [None]
